FAERS Safety Report 13406215 (Version 1)
Quarter: 2017Q2

REPORT INFORMATION
  Report Type: Spontaneous
  Country: US (occurrence: US)
  Receive Date: 20170405
  Receipt Date: 20170405
  Transmission Date: 20170830
  Serious: No
  Sender: FDA-Public Use
  Company Number: US-HORIZON-VIM-0044-2017

PATIENT
  Age: 70 Year
  Sex: Male

DRUGS (1)
  1. VIMOVO [Suspect]
     Active Substance: ESOMEPRAZOLE MAGNESIUM\NAPROXEN
     Indication: BURSITIS
     Dosage: 1 TABLET TWICE DAILY
     Dates: start: 20170118, end: 20170122

REACTIONS (4)
  - Peripheral swelling [Not Recovered/Not Resolved]
  - Off label use [Unknown]
  - Weight increased [Recovered/Resolved]
  - Gastritis [Not Recovered/Not Resolved]

NARRATIVE: CASE EVENT DATE: 20170118
